FAERS Safety Report 25912222 (Version 1)
Quarter: 2025Q4

REPORT INFORMATION
  Report Type: Spontaneous
  Country: US (occurrence: US)
  Receive Date: 20251013
  Receipt Date: 20251013
  Transmission Date: 20260117
  Serious: No
  Sender: NOVARTIS
  Company Number: US-002147023-NVSC2025US152504

PATIENT
  Sex: Female

DRUGS (1)
  1. NETSPOT [Suspect]
     Active Substance: GALLIUM OXODOTREOTIDE GA-68
     Indication: Imaging procedure
     Dosage: UNK (5.0MCI IN A SINGLE SYRINGE)
     Route: 065

REACTIONS (6)
  - Nausea [Unknown]
  - Feeling abnormal [Unknown]
  - Flushing [Unknown]
  - Abdominal distension [Unknown]
  - Flatulence [Unknown]
  - Weight decreased [Unknown]
